FAERS Safety Report 12871729 (Version 1)
Quarter: 2016Q4

REPORT INFORMATION
  Report Type: Spontaneous
  Country: AU (occurrence: AU)
  Receive Date: 20161021
  Receipt Date: 20161021
  Transmission Date: 20170207
  Serious: Yes (Death, Hospitalization)
  Sender: FDA-Public Use
  Company Number: AU-BAXTER-2016BAX052644

PATIENT
  Sex: Female

DRUGS (2)
  1. BAXTER 0.9% SODIUM CHLORIDE 450MG_50ML INJECTION BP BAG AHB1306_AHB136 [Suspect]
     Active Substance: SODIUM CHLORIDE
     Indication: DEVICE PRIMING
     Route: 010
     Dates: end: 20161010
  2. BICART [Suspect]
     Active Substance: SODIUM BICARBONATE
     Indication: HAEMODIALYSIS
     Route: 010
     Dates: end: 20161010

REACTIONS (2)
  - Pain [Unknown]
  - Cardiac arrest [Fatal]

NARRATIVE: CASE EVENT DATE: 20161010
